FAERS Safety Report 5832823-6 (Version None)
Quarter: 2008Q3

REPORT INFORMATION
  Report Type: 
  Country: None (occurrence: None)
  Receive Date: 20080731
  Receipt Date: 20080717
  Transmission Date: 20090109
  Serious: Yes (Death, Hospitalization)
  Sender: FDA-Public Use
  Company Number: 2008001604

PATIENT
  Age: 68 Year
  Sex: Female
  Weight: 44 kg

DRUGS (5)
  1. ERLOTINIB (ERLOTINIB) (TABLET) (ERLOTINIB) [Suspect]
     Indication: LUNG NEOPLASM MALIGNANT
     Dosage: (150 MG, QD), ORAL
     Route: 048
     Dates: start: 20080512, end: 20080529
  2. SUNITINIB/PLACEBO [Suspect]
     Dosage: 37.5 MG
     Dates: start: 20080512
  3. FUROSEMIDE [Concomitant]
  4. METOPROLOL TARTRATE [Concomitant]
  5. CALTRATE PLUS (CALTRATE PLUS) [Concomitant]

REACTIONS (9)
  - ACTIVITIES OF DAILY LIVING IMPAIRED [None]
  - ASPARTATE AMINOTRANSFERASE INCREASED [None]
  - DIARRHOEA [None]
  - FATIGUE [None]
  - HYPOALBUMINAEMIA [None]
  - LABORATORY TEST ABNORMAL [None]
  - PULMONARY EMBOLISM [None]
  - PULMONARY INFARCTION [None]
  - THROMBOCYTOPENIA [None]
